FAERS Safety Report 20610357 (Version 2)
Quarter: 2024Q2

REPORT INFORMATION
  Report Type: Spontaneous
  Country: US (occurrence: US)
  Receive Date: 20220318
  Receipt Date: 20240408
  Transmission Date: 20240716
  Serious: No
  Sender: FDA-Public Use
  Company Number: US-UCBSA-2021060262

PATIENT
  Sex: Female

DRUGS (1)
  1. BRIVIACT [Suspect]
     Active Substance: BRIVARACETAM
     Indication: Seizure
     Dosage: 50MG

REACTIONS (4)
  - Muscle contracture [Unknown]
  - Gait disturbance [Unknown]
  - Speech disorder [Unknown]
  - Dysphagia [Unknown]
